FAERS Safety Report 18207166 (Version 1)
Quarter: 2020Q3

REPORT INFORMATION
  Report Type: Spontaneous
  Country: CA (occurrence: CA)
  Receive Date: 20200828
  Receipt Date: 20200828
  Transmission Date: 20201103
  Serious: Yes (Other)
  Sender: FDA-Public Use
  Company Number: CA-GLAXOSMITHKLINE-CA2020GSK170491

PATIENT
  Age: 32 Year
  Sex: Female

DRUGS (3)
  1. BUPROPION SR [Suspect]
     Active Substance: BUPROPION HYDROCHLORIDE
     Indication: DEPRESSION
     Dosage: 150 MG, 1D
     Route: 048
  2. BUPROPION SR [Suspect]
     Active Substance: BUPROPION HYDROCHLORIDE
     Indication: ANXIETY
  3. BUPROPION SR [Suspect]
     Active Substance: BUPROPION HYDROCHLORIDE
     Indication: BIPOLAR DISORDER

REACTIONS (6)
  - Irritability [Unknown]
  - Mood altered [Unknown]
  - Anxiety [Unknown]
  - Abnormal behaviour [Recovered/Resolved]
  - Panic attack [Unknown]
  - Suicidal ideation [Unknown]
